FAERS Safety Report 18697085 (Version 2)
Quarter: 2021Q1

REPORT INFORMATION
  Report Type: Spontaneous
  Country: US (occurrence: US)
  Receive Date: 20210104
  Receipt Date: 20210224
  Transmission Date: 20210419
  Serious: Yes (Death, Life-Threatening, Hospitalization, Other)
  Sender: FDA-Public Use
  Company Number: US-ELI_LILLY_AND_COMPANY-US202012014042

PATIENT
  Age: 60 Year
  Sex: Male

DRUGS (7)
  1. BARICITINIB. [Suspect]
     Active Substance: BARICITINIB
     Indication: COVID-19
     Dosage: 2 MG, DAILY
     Route: 048
     Dates: start: 20201212, end: 20201215
  2. REMDESIVIR. [Concomitant]
     Active Substance: REMDESIVIR
     Indication: COVID-19
     Dosage: UNK
     Dates: start: 20201211, end: 20201215
  3. PIPERACILINA + TAZOBACTAM [Concomitant]
     Active Substance: PIPERACILLIN SODIUM\TAZOBACTAM SODIUM
     Indication: COVID-19
     Dosage: UNK
     Dates: start: 20201211, end: 20201220
  4. ZINC. [Concomitant]
     Active Substance: ZINC
     Indication: COVID-19
  5. BARICITINIB. [Suspect]
     Active Substance: BARICITINIB
     Dosage: 4 MG, DAILY
     Route: 048
     Dates: start: 20201215, end: 20201219
  6. DECADRON [Concomitant]
     Active Substance: DEXAMETHASONE
     Indication: COVID-19
     Dosage: UNK
     Dates: start: 20201210, end: 20201226
  7. VITAMIN C [Concomitant]
     Active Substance: ASCORBIC ACID
     Indication: COVID-19

REACTIONS (7)
  - Pneumonia pseudomonal [Unknown]
  - Sepsis [Unknown]
  - Oxygen saturation decreased [Unknown]
  - Melaena [Unknown]
  - Cardiac arrest [Fatal]
  - Bradycardia [Fatal]
  - Respiratory distress [Unknown]

NARRATIVE: CASE EVENT DATE: 20201217
